FAERS Safety Report 12575489 (Version 2)
Quarter: 2017Q1

REPORT INFORMATION
  Report Type: Spontaneous
  Country: US (occurrence: US)
  Receive Date: 20160720
  Receipt Date: 20170207
  Transmission Date: 20170428
  Serious: Yes (Hospitalization)
  Sender: FDA-Public Use
  Company Number: US-ASTELLAS-2016US018210

PATIENT
  Age: 72 Year
  Sex: Female

DRUGS (1)
  1. VESICARE [Suspect]
     Active Substance: SOLIFENACIN SUCCINATE
     Indication: PRODUCT USED FOR UNKNOWN INDICATION
     Route: 065

REACTIONS (7)
  - Nervousness [Unknown]
  - Depressed level of consciousness [Unknown]
  - Fatigue [Recovering/Resolving]
  - Fall [Unknown]
  - Feeling abnormal [Unknown]
  - Confusional state [Unknown]
  - Activities of daily living impaired [Recovering/Resolving]

NARRATIVE: CASE EVENT DATE: 201701
